FAERS Safety Report 8201640-4 (Version None)
Quarter: 2012Q1

REPORT INFORMATION
  Report Type: 
  Country: None (occurrence: None)
  Receive Date: 20120312
  Receipt Date: 20120308
  Transmission Date: 20120608
  Serious: Yes (Hospitalization)
  Sender: FDA-Public Use
  Company Number: IT-ROCHE-1040592

PATIENT
  Sex: Female

DRUGS (3)
  1. CLONAZEPAM [Suspect]
     Indication: INTENTIONAL SELF-INJURY
     Dosage: DROPS 2,5 MG
     Route: 048
     Dates: start: 20120122, end: 20120122
  2. TRAMADOL HCL [Suspect]
     Indication: INTENTIONAL SELF-INJURY
     Dosage: TABLET EXTENDED RELEASE 100 MG
     Route: 048
     Dates: start: 20120122, end: 20120122
  3. VALIUM [Suspect]
     Indication: INTENTIONAL SELF-INJURY
     Dosage: ORAL SOLUTION 5 MG/ML
     Route: 048
     Dates: start: 20120122, end: 20120122

REACTIONS (2)
  - HYPOTONIA [None]
  - BRADYPHRENIA [None]
